FAERS Safety Report 9382055 (Version 1)
Quarter: 2013Q3

REPORT INFORMATION
  Report Type: Spontaneous
  Country: US (occurrence: US)
  Receive Date: 20130703
  Receipt Date: 20130703
  Transmission Date: 20140515
  Serious: Yes (Other)
  Sender: FDA-Public Use
  Company Number: US-ASTRAZENECA-2013SE48611

PATIENT
  Sex: 0
  Weight: 108.9 kg

DRUGS (11)
  1. PRILOSEC [Suspect]
     Route: 048
  2. SUTENT [Suspect]
     Route: 065
     Dates: end: 20130402
  3. SUTENT [Suspect]
     Route: 065
  4. PHENERGAN [Concomitant]
  5. AZOR [Concomitant]
  6. AMBIEN [Concomitant]
  7. GAS-X [Concomitant]
  8. ATIVAN [Concomitant]
  9. NYSTATIN/LIDOCAINE SWISH [Concomitant]
  10. TAGAMET [Concomitant]
  11. CARAFATE [Concomitant]

REACTIONS (12)
  - Hepatic lesion [Unknown]
  - Lymphadenopathy [Unknown]
  - White blood cell count decreased [Unknown]
  - Palmar-plantar erythrodysaesthesia syndrome [Unknown]
  - Skin disorder [Unknown]
  - Skin discolouration [Unknown]
  - Hypoaesthesia [Unknown]
  - Paraesthesia [Unknown]
  - Salivary hypersecretion [Unknown]
  - Back pain [Unknown]
  - Flatulence [Unknown]
  - Abdominal distension [Unknown]
